FAERS Safety Report 19821060 (Version 2)
Quarter: 2021Q4

REPORT INFORMATION
  Report Type: Spontaneous
  Country: FR (occurrence: FR)
  Receive Date: 20210913
  Receipt Date: 20211129
  Transmission Date: 20220303
  Serious: Yes (Other)
  Sender: FDA-Public Use
  Company Number: None

PATIENT
  Age: 71 Year
  Sex: Female
  Weight: 70 kg

DRUGS (6)
  1. DEXAMETHASONE [Suspect]
     Active Substance: DEXAMETHASONE
     Indication: COVID-19
     Dosage: 10 MILLIGRAM, QD
     Route: 042
     Dates: start: 20201119, end: 20201129
  2. CEFTRIAXONE [Suspect]
     Active Substance: CEFTRIAXONE
     Indication: Antibiotic prophylaxis
     Dosage: 1 GRAM, QD
     Route: 042
     Dates: start: 20201119, end: 20201119
  3. PIPERACILLIN SODIUM\TAZOBACTAM SODIUM [Suspect]
     Active Substance: PIPERACILLIN SODIUM\TAZOBACTAM SODIUM
     Indication: Antibiotic prophylaxis
     Dosage: 16 GRAM, QD
     Route: 042
     Dates: start: 20201122, end: 20201125
  4. NOREPINEPHRINE [Suspect]
     Active Substance: NOREPINEPHRINE
     Indication: Shock symptom
     Dosage: UNK, (NON PRECISE)
     Route: 042
     Dates: start: 20201120, end: 20201203
  5. SPIRAMYCIN [Suspect]
     Active Substance: SPIRAMYCIN
     Indication: Antibiotic prophylaxis
     Dosage: 9 KILO-INTERNATIONAL UNIT, QD
     Route: 042
     Dates: start: 20201119, end: 20201120
  6. SEVOFLURANE [Suspect]
     Active Substance: SEVOFLURANE
     Indication: Sedation
     Dosage: 5 MILLILITER, QH
     Route: 055
     Dates: start: 20201121, end: 20201125

REACTIONS (2)
  - Diabetes insipidus [Recovered/Resolved]
  - Off label use [Recovered/Resolved]

NARRATIVE: CASE EVENT DATE: 20201119
